FAERS Safety Report 5717382-0 (Version None)
Quarter: 2008Q2

REPORT INFORMATION
  Report Type: 
  Country: None (occurrence: None)
  Receive Date: 20080425
  Receipt Date: 20080414
  Transmission Date: 20081010
  Serious: Yes (Hospitalization, Other)
  Sender: FDA-Public Use
  Company Number: US-WYE-H03614208

PATIENT
  Age: 38 Year
  Sex: Female

DRUGS (7)
  1. EFFEXOR XR [Suspect]
     Indication: DEPRESSION
     Route: 048
     Dates: start: 20070201, end: 20070101
  2. EFFEXOR XR [Suspect]
     Indication: BIPOLAR DISORDER
     Dosage: ^WEANED OFF OVER A TWO MONTH PERIOD^
     Route: 048
     Dates: start: 20070101, end: 20070101
  3. EFFEXOR XR [Suspect]
     Dosage: DOSE AND FREQUENCY UNSPECIFIED
     Route: 048
     Dates: start: 20070808, end: 20071001
  4. EFFEXOR XR [Suspect]
     Dosage: ^TAPERED OFF BY COUNTING THE BEADS^
     Route: 048
     Dates: start: 20071001, end: 20080101
  5. TOPROL-XL [Suspect]
     Dosage: DOSE AND FREQUENCY UNSPECIFIED
     Dates: start: 20070101
  6. TRAZODONE HCL [Suspect]
     Dosage: 150 MG
     Dates: start: 20070101
  7. TRAZODONE HCL [Suspect]
     Dosage: ^TAPERED THE DOSE BY HALF^

REACTIONS (19)
  - ABDOMINAL PAIN UPPER [None]
  - AGITATION [None]
  - ARRHYTHMIA [None]
  - BLOOD PRESSURE INCREASED [None]
  - CARDIAC VALVE DISEASE [None]
  - CONVULSION [None]
  - DIARRHOEA [None]
  - DRUG WITHDRAWAL SYNDROME [None]
  - EATING DISORDER [None]
  - FEELING JITTERY [None]
  - FLATULENCE [None]
  - HEART RATE INCREASED [None]
  - INSOMNIA [None]
  - NIGHTMARE [None]
  - PARAESTHESIA [None]
  - SERUM SEROTONIN INCREASED [None]
  - TINNITUS [None]
  - VOMITING [None]
  - WEIGHT DECREASED [None]
